FAERS Safety Report 8879138 (Version 1)
Quarter: 2012Q4

REPORT INFORMATION
  Report Type: Spontaneous
  Country: US (occurrence: None)
  Receive Date: 20121031
  Receipt Date: 20121031
  Transmission Date: 20130627
  Serious: Yes (Other)
  Sender: FDA-Public Use
  Company Number: None

PATIENT
  Age: 42 Year
  Sex: Female

DRUGS (1)
  1. TYKERB [Suspect]
     Indication: CANCER
     Route: 048

REACTIONS (3)
  - Nausea [None]
  - Vomiting [None]
  - Dehydration [None]
